FAERS Safety Report 21661452 (Version 4)
Quarter: 2023Q1

REPORT INFORMATION
  Report Type: Spontaneous
  Country: JP (occurrence: JP)
  Receive Date: 20221130
  Receipt Date: 20230110
  Transmission Date: 20230418
  Serious: Yes (Other)
  Sender: FDA-Public Use
  Company Number: JP-002147023-NVSJ2022JP101874

PATIENT
  Age: 69 Year
  Sex: Female
  Weight: 54 kg

DRUGS (4)
  1. VOTRIENT [Suspect]
     Active Substance: PAZOPANIB HYDROCHLORIDE
     Indication: Myxoid liposarcoma
     Dosage: UNK
     Route: 048
  2. DOXORUBICIN HYDROCHLORIDE [Concomitant]
     Active Substance: DOXORUBICIN HYDROCHLORIDE
     Indication: Myxoid liposarcoma
     Dosage: REACHED CUMULATIVE DOSE LIMIT
     Route: 065
  3. TRABECTEDIN [Concomitant]
     Active Substance: TRABECTEDIN
     Indication: Myxoid liposarcoma
     Dosage: UNK
     Route: 065
  4. ERIBULIN [Concomitant]
     Active Substance: ERIBULIN
     Indication: Myxoid liposarcoma
     Dosage: UNK
     Route: 065

REACTIONS (1)
  - Drug-induced liver injury [Unknown]

NARRATIVE: CASE EVENT DATE: 20210108
